FAERS Safety Report 9194486 (Version 1)
Quarter: 2013Q1

REPORT INFORMATION
  Report Type: Spontaneous
  Country: US (occurrence: US)
  Receive Date: 20130327
  Receipt Date: 20130327
  Transmission Date: 20140127
  Serious: No
  Sender: FDA-Public Use
  Company Number: US-ALLERGAN-1206586US

PATIENT
  Age: 67 Year
  Sex: Female

DRUGS (8)
  1. LATISSE 0.03% [Suspect]
     Indication: GROWTH OF EYELASHES
     Dosage: 2 GTT, QHS
     Route: 061
     Dates: start: 20120411
  2. TOPROL [Concomitant]
     Indication: HYPERTENSION
     Dosage: 25 MG, QD
  3. COZAAR [Concomitant]
     Indication: HYPERTENSION
  4. HCTZ [Concomitant]
     Indication: DIURETIC THERAPY
     Dosage: 50 MG, QOD
  5. ATIVAN [Concomitant]
     Indication: SLEEP DISORDER
     Dosage: 1 MG, QHS
  6. OMEPRAZOLE [Concomitant]
     Indication: ABDOMINAL DISCOMFORT
     Dosage: 20 MG, UNK
  7. VITAMINS [Concomitant]
     Indication: PRODUCT USED FOR UNKNOWN INDICATION
  8. ARTIFICIAL TEARS                   /00445101/ [Concomitant]
     Indication: PRODUCT USED FOR UNKNOWN INDICATION

REACTIONS (1)
  - Vitreous floaters [Not Recovered/Not Resolved]
